FAERS Safety Report 21138581 (Version 1)
Quarter: 2022Q3

REPORT INFORMATION
  Report Type: Report from Study
  Country: HN (occurrence: HN)
  Receive Date: 20220727
  Receipt Date: 20220727
  Transmission Date: 20221026
  Serious: Yes (Other)
  Sender: FDA-Public Use
  Company Number: HN-NOVARTISPH-NVSC2022HN169431

PATIENT
  Age: 51 Year
  Sex: Female

DRUGS (1)
  1. DIOVAN [Suspect]
     Active Substance: VALSARTAN
     Indication: Product used for unknown indication
     Dosage: 320 MG
     Route: 065
     Dates: start: 2020, end: 202202

REACTIONS (1)
  - Blood pressure abnormal [Unknown]
